FAERS Safety Report 23865707 (Version 1)
Quarter: 2024Q2

REPORT INFORMATION
  Report Type: Spontaneous
  Country: US (occurrence: US)
  Receive Date: 20240517
  Receipt Date: 20240517
  Transmission Date: 20240716
  Serious: No
  Sender: FDA-Public Use
  Company Number: US-AMGEN-USASP2024095066

PATIENT
  Age: 76 Year
  Sex: Male

DRUGS (1)
  1. REPATHA [Suspect]
     Active Substance: EVOLOCUMAB
     Indication: Hypercholesterolaemia
     Dosage: UNK, Q8WK (STRENGTH : 140 MG)
     Route: 065

REACTIONS (6)
  - Injection site pain [Unknown]
  - Device difficult to use [Unknown]
  - Accidental exposure to product [Unknown]
  - Device use error [Unknown]
  - Incorrect dose administered by device [Unknown]
  - Off label use [Unknown]

NARRATIVE: CASE EVENT DATE: 20240511
